FAERS Safety Report 22022145 (Version 1)
Quarter: 2023Q1

REPORT INFORMATION
  Report Type: Spontaneous
  Country: US (occurrence: None)
  Receive Date: 20230220
  Receipt Date: 20230220
  Transmission Date: 20230417
  Serious: Yes (Hospitalization)
  Sender: FDA-Public Use
  Company Number: None

PATIENT
  Age: 76 Year
  Sex: Male
  Weight: 90.7 kg

DRUGS (4)
  1. REMDESIVIR [Suspect]
     Active Substance: REMDESIVIR
     Dosage: FREQUENCY : DAILY;?
     Route: 042
     Dates: start: 20230212, end: 20230215
  2. CEFTRIAXONE [Concomitant]
     Active Substance: CEFTRIAXONE
     Dates: start: 20230212, end: 20230216
  3. AZITHROMYCIN ANHYDROUS [Concomitant]
     Active Substance: AZITHROMYCIN ANHYDROUS
     Dates: start: 20230212, end: 20230215
  4. Dexamethasone 10 mg [Concomitant]
     Dates: start: 20230213, end: 20230217

REACTIONS (1)
  - Atrioventricular block second degree [None]

NARRATIVE: CASE EVENT DATE: 20230216
